FAERS Safety Report 9743174 (Version 2)
Quarter: 2015Q3

REPORT INFORMATION
  Report Type: Spontaneous
  Country: US (occurrence: US)
  Receive Date: 20131210
  Receipt Date: 20150804
  Transmission Date: 20151125
  Serious: No
  Sender: FDA-Public Use
  Company Number: US-GILEAD-2009-0024898

PATIENT
  Age: 58 Year
  Sex: Male
  Weight: 99.79 kg

DRUGS (31)
  1. CAPTOPRIL. [Concomitant]
     Active Substance: CAPTOPRIL
  2. LASIX [Concomitant]
     Active Substance: FUROSEMIDE
  3. LOTRIMIN [Concomitant]
     Active Substance: CLOTRIMAZOLE
  4. LEXAPRO [Concomitant]
     Active Substance: ESCITALOPRAM OXALATE
  5. GLUMETZA ER [Concomitant]
  6. PHENAZOPYRADINE [Concomitant]
  7. AVODART [Concomitant]
     Active Substance: DUTASTERIDE
  8. TERAZOSIN [Concomitant]
     Active Substance: TERAZOSIN\TERAZOSIN HYDROCHLORIDE
  9. DIGOXIN. [Concomitant]
     Active Substance: DIGOXIN
  10. ANTIVERT [Concomitant]
     Active Substance: MECLIZINE HYDROCHLORIDE
  11. ZETIA [Concomitant]
     Active Substance: EZETIMIBE
  12. ASPIRIN. [Concomitant]
     Active Substance: ASPIRIN
  13. METOLAZONE. [Concomitant]
     Active Substance: METOLAZONE
  14. DIAZEPAM. [Concomitant]
     Active Substance: DIAZEPAM
  15. TESTIM [Concomitant]
     Active Substance: TESTOSTERONE
  16. NEURONTIN [Concomitant]
     Active Substance: GABAPENTIN
  17. VALIUM [Concomitant]
     Active Substance: DIAZEPAM
  18. LETAIRIS [Suspect]
     Active Substance: AMBRISENTAN
     Indication: PULMONARY ARTERIAL HYPERTENSION
     Route: 048
  19. METOPROLOL [Concomitant]
     Active Substance: METOPROLOL
  20. GLIMEPIRIDE/ROSIGLITAZONE MALEATE [Concomitant]
  21. SPIRONOLACTONE. [Concomitant]
     Active Substance: SPIRONOLACTONE
  22. FLOMAX [Concomitant]
     Active Substance: TAMSULOSIN HYDROCHLORIDE
  23. NOVOLOG [Concomitant]
     Active Substance: INSULIN ASPART
  24. TRIMETHOPRIM. [Concomitant]
     Active Substance: TRIMETHOPRIM
  25. GEMFIBROZIL. [Concomitant]
     Active Substance: GEMFIBROZIL
  26. LETAIRIS [Suspect]
     Active Substance: AMBRISENTAN
     Route: 048
     Dates: start: 20080122
  27. PRIMIDONE. [Concomitant]
     Active Substance: PRIMIDONE
  28. POTASSIUM CHLORIDE. [Concomitant]
     Active Substance: POTASSIUM CHLORIDE
  29. PRAVASTATIN [Concomitant]
     Active Substance: PRAVASTATIN\PRAVASTATIN SODIUM
  30. NIFEDIPINE. [Concomitant]
     Active Substance: NIFEDIPINE
  31. CYMBALTA [Concomitant]
     Active Substance: DULOXETINE HYDROCHLORIDE

REACTIONS (1)
  - Headache [Unknown]
